FAERS Safety Report 9657808 (Version 1)
Quarter: 2013Q4

REPORT INFORMATION
  Report Type: Spontaneous
  Country: JO (occurrence: None)
  Receive Date: 20131029
  Receipt Date: 20131029
  Transmission Date: 20140711
  Serious: Yes (Hospitalization)
  Sender: FDA-Public Use
  Company Number: 2013PL000177

PATIENT
  Age: 12 Year
  Sex: Male

DRUGS (1)
  1. MERCAPTOPURINE [Suspect]
     Indication: NON-HODGKIN^S LYMPHOMA
     Dosage: ; UNK ;
     Dates: start: 2011, end: 201108

REACTIONS (1)
  - Pancreatitis acute [None]
